FAERS Safety Report 5131095-8 (Version None)
Quarter: 2006Q3

REPORT INFORMATION
  Report Type: 
  Country: None (occurrence: None)
  Receive Date: 20060825
  Receipt Date: 20060601
  Transmission Date: 20061208
  Serious: Yes (Other)
  Sender: FDA-Public Use
  Company Number: 2006034425

PATIENT
  Sex: Male

DRUGS (10)
  1. VFEND [Suspect]
     Indication: FUNGAL ENDOCARDITIS
     Dosage: 400 MG (200 MG,2 IN 1 D)
  2. AMIODARONE HCL [Concomitant]
  3. COUMADIN [Concomitant]
  4. ISORDIL [Concomitant]
  5. ZEBETA [Concomitant]
  6. POTASSIUM CHLORIDE [Concomitant]
  7. LANTUS [Concomitant]
  8. ALBUTEROL [Concomitant]
  9. ALL OTHER THERAPEUTIC PRODUCTS (ALL OTHER THERAPEUTIC PRODUCTS) [Concomitant]
  10. ALDACTONE [Concomitant]

REACTIONS (4)
  - ALANINE AMINOTRANSFERASE INCREASED [None]
  - ASPARTATE AMINOTRANSFERASE INCREASED [None]
  - HALLUCINATION [None]
  - VISUAL DISTURBANCE [None]
